FAERS Safety Report 5304981-3 (Version None)
Quarter: 2007Q2

REPORT INFORMATION
  Report Type: 
  Country: None (occurrence: None)
  Receive Date: 20070423
  Receipt Date: 20070417
  Transmission Date: 20071010
  Serious: Yes (Hospitalization)
  Sender: FDA-Public Use
  Company Number: US-GENENTECH-239106

PATIENT
  Age: 53 Year
  Sex: Female

DRUGS (11)
  1. BEVACIZUMAB [Suspect]
     Indication: RENAL CELL CARCINOMA STAGE UNSPECIFIED
     Dosage: 569 MG, Q2W
     Route: 042
     Dates: start: 20061130
  2. INTERLEUKIN-2 [Suspect]
     Indication: RENAL CELL CARCINOMA STAGE UNSPECIFIED
  3. DEMEROL [Concomitant]
     Indication: DRUG USE FOR UNKNOWN INDICATION
     Dosage: 50 MG, UNK
  4. NYSTATIN [Concomitant]
     Indication: MUCOSAL INFLAMMATION
     Dates: start: 20070304
  5. HYCODAN [Concomitant]
     Indication: COUGH
     Dates: start: 20070118
  6. LEVAQUIN [Concomitant]
     Indication: URINARY TRACT INFECTION
     Dates: start: 20070315, end: 20070328
  7. ALLOPURINOL [Concomitant]
     Indication: HYPERURICAEMIA
     Dates: start: 20070213
  8. DURAGESIC-100 [Concomitant]
     Indication: PAIN
     Dates: start: 20070315, end: 20070318
  9. CARAFATE [Concomitant]
     Indication: GASTROINTESTINAL DISORDER
     Dates: start: 20070304
  10. PHENERGAN HCL [Concomitant]
     Indication: NAUSEA
     Dates: start: 20070315
  11. PROTONIX [Concomitant]
     Indication: GASTROOESOPHAGEAL REFLUX DISEASE
     Dates: start: 20070304

REACTIONS (3)
  - ANAEMIA [None]
  - HYPOKALAEMIA [None]
  - NERVE ROOT COMPRESSION [None]
